FAERS Safety Report 7357131-6 (Version None)
Quarter: 2011Q1

REPORT INFORMATION
  Report Type: 
  Country: None (occurrence: None)
  Receive Date: 20110308
  Receipt Date: 20110223
  Transmission Date: 20110831
  Serious: Yes (Other)
  Sender: FDA-Public Use
  Company Number: 1000019092

PATIENT
  Age: 84 Year
  Sex: Female

DRUGS (4)
  1. DIURETICS (DIURETICS) (DIURETICS) [Concomitant]
  2. ASS (ACETYLSALICYLIC ACID) (ACETYLSALICYLIC ACID) [Concomitant]
  3. CITALOPRAM HYDROBROMIDE [Suspect]
     Indication: DEPRESSION
  4. BETA BLOCKING AGENT (BETA BLOCKING AGENTS) [Concomitant]

REACTIONS (6)
  - IRRITABILITY [None]
  - TREMOR [None]
  - DISORIENTATION [None]
  - APATHY [None]
  - HALLUCINATION [None]
  - DRUG INEFFECTIVE [None]
